FAERS Safety Report 10226977 (Version 1)
Quarter: 2014Q2

REPORT INFORMATION
  Report Type: Spontaneous
  Country: US (occurrence: US)
  Receive Date: 20140610
  Receipt Date: 20140610
  Transmission Date: 20141212
  Serious: Yes (Hospitalization)
  Sender: FDA-Public Use
  Company Number: US-BRISTOL-MYERS SQUIBB COMPANY-20932042

PATIENT
  Age: 56 Year
  Sex: Female

DRUGS (2)
  1. BYETTA [Suspect]
     Indication: TYPE 2 DIABETES MELLITUS
     Dosage: STOP:ABOUT 3 WEEKS AFTER STARTING THERAPY
  2. METFORMIN [Concomitant]

REACTIONS (4)
  - Renal failure [Unknown]
  - Non-alcoholic steatohepatitis [Unknown]
  - Abdominal discomfort [Unknown]
  - Weight increased [Unknown]
